FAERS Safety Report 11174364 (Version 2)
Quarter: 2015Q3

REPORT INFORMATION
  Report Type: Spontaneous
  Country: US (occurrence: US)
  Receive Date: 20150609
  Receipt Date: 20150721
  Transmission Date: 20151125
  Serious: No
  Sender: FDA-Public Use
  Company Number: US-BAYER-2015-316879

PATIENT
  Age: 70 Year
  Sex: Female
  Weight: 136.5 kg

DRUGS (2)
  1. ALEVE [Suspect]
     Active Substance: NAPROXEN SODIUM
     Indication: INSOMNIA
  2. ALEVE [Suspect]
     Active Substance: NAPROXEN SODIUM
     Indication: RESTLESS LEGS SYNDROME
     Dosage: 1-2 GEL CAPS AS NEEDED
     Route: 048

REACTIONS (2)
  - Product use issue [Unknown]
  - Drug ineffective for unapproved indication [Unknown]
